FAERS Safety Report 9374513 (Version 1)
Quarter: 2013Q2

REPORT INFORMATION
  Report Type: Spontaneous
  Country: CN (occurrence: CN)
  Receive Date: 20130628
  Receipt Date: 20130628
  Transmission Date: 20140414
  Serious: Yes (Hospitalization)
  Sender: FDA-Public Use
  Company Number: CN-JNJFOC-20130613089

PATIENT
  Age: 44 Year
  Sex: Female

DRUGS (1)
  1. SPORANOX [Suspect]
     Indication: ONYCHOMYCOSIS
     Route: 048
     Dates: start: 20120330, end: 20120425

REACTIONS (8)
  - Alanine aminotransferase increased [Recovering/Resolving]
  - Aspartate aminotransferase increased [Recovering/Resolving]
  - Blood alkaline phosphatase increased [Recovering/Resolving]
  - Gamma-glutamyltransferase increased [Recovering/Resolving]
  - Disease progression [Unknown]
  - Nausea [Recovering/Resolving]
  - Vomiting [Recovering/Resolving]
  - Hypophagia [Recovering/Resolving]
